FAERS Safety Report 6263509-4 (Version None)
Quarter: 2009Q3

REPORT INFORMATION
  Report Type: 
  Country: None (occurrence: None)
  Receive Date: 20090710
  Receipt Date: 20090325
  Transmission Date: 20100115
  Serious: No
  Sender: FDA-Public Use
  Company Number: A0775345A

PATIENT
  Age: 43 Year
  Sex: Female

DRUGS (2)
  1. TYKERB [Suspect]
     Indication: BREAST CANCER
     Dosage: 4TAB PER DAY
     Route: 048
     Dates: start: 20090201
  2. OXYCODONE HCL [Suspect]
     Dosage: 20MG AS REQUIRED
     Route: 065
     Dates: start: 20081201

REACTIONS (5)
  - DIARRHOEA [None]
  - NAUSEA [None]
  - PRURITUS [None]
  - RASH [None]
  - VOMITING [None]
